FAERS Safety Report 5057159-5 (Version None)
Quarter: 2006Q2

REPORT INFORMATION
  Report Type: 
  Country: None (occurrence: None)
  Receive Date: 20060622
  Receipt Date: 20060130
  Transmission Date: 20061013
  Serious: Yes (Hospitalization)
  Sender: FDA-Public Use
  Company Number: US-JNJFOC-20060200774

PATIENT
  Age: 42 Year
  Sex: Female
  Weight: 72.5755 kg

DRUGS (4)
  1. FENTANYL [Suspect]
     Indication: PAIN
     Dosage: SEE IMAGE
     Dates: start: 20051101, end: 20051101
  2. FENTANYL [Suspect]
     Indication: PAIN
     Dosage: SEE IMAGE
     Dates: start: 20051101
  3. PREDNISONE (PREDNISONE) TABLET [Concomitant]
  4. SOMA [Concomitant]

REACTIONS (1)
  - BACK PAIN [None]
